FAERS Safety Report 5376517-2 (Version None)
Quarter: 2007Q3

REPORT INFORMATION
  Report Type: 
  Country: None (occurrence: None)
  Receive Date: 20070702
  Receipt Date: 20070618
  Transmission Date: 20080115
  Serious: Yes (Hospitalization)
  Sender: FDA-Public Use
  Company Number: US-SHR-US-2007-020006

PATIENT
  Age: 61 Year
  Sex: Female
  Weight: 81.633 kg

DRUGS (6)
  1. BETASERON [Suspect]
     Indication: MULTIPLE SCLEROSIS
     Dosage: 8 MIU, EVERY 2D
     Route: 058
     Dates: start: 20000101, end: 20061201
  2. ALBUTEROL [Concomitant]
     Dosage: UNK, AS REQ'D
     Route: 055
  3. COUMADIN [Concomitant]
     Dosage: 7.5 MG/D, UNK
  4. LEXAPRO [Concomitant]
     Indication: DEPRESSION
     Dosage: 20 MG, BED T.
  5. DILANTIN [Concomitant]
     Dosage: 300 MG/D, UNK
  6. DILANTIN [Concomitant]
     Dosage: 400 MG/D, UNK

REACTIONS (8)
  - CARDIOVASCULAR DISORDER [None]
  - COUGH [None]
  - DYSPNOEA [None]
  - INFLUENZA LIKE ILLNESS [None]
  - INJECTION SITE REACTION [None]
  - MULTIPLE SCLEROSIS [None]
  - NASOPHARYNGITIS [None]
  - PULMONARY OEDEMA [None]
